FAERS Safety Report 9624478 (Version 4)
Quarter: 2013Q4

REPORT INFORMATION
  Report Type: Report from Study
  Country: US (occurrence: US)
  Receive Date: 20131015
  Receipt Date: 20131223
  Transmission Date: 20140711
  Serious: Yes (Hospitalization, Other)
  Sender: FDA-Public Use
  Company Number: US-ELI_LILLY_AND_COMPANY-US201309001846

PATIENT
  Age: 70 Year
  Sex: Female

DRUGS (3)
  1. TERIPARATIDE [Suspect]
     Indication: OSTEOPOROSIS
     Dosage: 20 UG, QD
  2. TERIPARATIDE [Suspect]
     Dosage: 20 UG, QD
     Dates: start: 20130625
  3. TERIPARATIDE [Suspect]
     Dosage: UNK UNK, QD
     Route: 065

REACTIONS (6)
  - Migraine [Unknown]
  - Migraine [Unknown]
  - Headache [Not Recovered/Not Resolved]
  - Arthralgia [Not Recovered/Not Resolved]
  - Pain in extremity [Not Recovered/Not Resolved]
  - Dysgeusia [Unknown]
